FAERS Safety Report 8801718 (Version 2)
Quarter: 2012Q4

REPORT INFORMATION
  Report Type: Report from Study
  Country: FR (occurrence: FR)
  Receive Date: 20120921
  Receipt Date: 20120924
  Transmission Date: 20130627
  Serious: Yes (Hospitalization)
  Sender: FDA-Public Use
  Company Number: FR-ROCHE-1126211

PATIENT
  Age: 62 Year
  Sex: Female
  Weight: 56.5 kg

DRUGS (10)
  1. BLINDED RO 5024048 (HCV POLYMERASE INHIBITOR) [Suspect]
     Indication: HEPATITIS C
     Dosage: date of most recent dose prior to AE onset- 07/Sep/2012
     Route: 048
     Dates: start: 20120628
  2. PEGASYS [Suspect]
     Indication: HEPATITIS C
     Dosage: date of most recent dose prior to AE-06/Sep/2012
     Route: 058
     Dates: start: 20120628
  3. COPEGUS [Suspect]
     Indication: HEPATITIS C
     Dosage: date of most recent dose prior to AE-07/Sep/2012
     Route: 048
     Dates: start: 20120628
  4. TELAPREVIR [Suspect]
     Indication: HEPATITIS C
     Dosage: date of most recent dose prior to AE onset-07/Sep/2012
     Route: 048
     Dates: start: 20120628
  5. PARACETAMOL [Concomitant]
     Route: 065
     Dates: start: 20120628
  6. DEXERYL (FRANCE) [Concomitant]
     Indication: DRY SKIN
     Route: 065
     Dates: start: 20120628
  7. VOGALENE [Concomitant]
     Indication: VOMITING
     Route: 065
     Dates: start: 20120628
  8. DIPROSONE [Concomitant]
     Indication: RASH PAPULAR
     Route: 065
     Dates: start: 20120705, end: 20120917
  9. XYZALL [Concomitant]
     Indication: RASH PAPULAR
     Route: 065
     Dates: start: 20120705, end: 20120917
  10. BICARBONATE [Concomitant]
     Indication: MUCOSAL INFLAMMATION
     Route: 065
     Dates: start: 20120712

REACTIONS (1)
  - Abdominal wall abscess [Unknown]
